FAERS Safety Report 7893784-1 (Version None)
Quarter: 2011Q4

REPORT INFORMATION
  Report Type: 
  Country: None (occurrence: None)
  Receive Date: 20111104
  Receipt Date: 20111026
  Transmission Date: 20120403
  Serious: Yes (Hospitalization)
  Sender: FDA-Public Use
  Company Number: SE-ROCHE-1008720

PATIENT
  Sex: Female

DRUGS (2)
  1. LUCENTIS [Suspect]
     Indication: MACULAR DEGENERATION
     Route: 050
     Dates: start: 20110531
  2. LUCENTIS [Suspect]

REACTIONS (4)
  - VISUAL ACUITY REDUCED [None]
  - VISION BLURRED [None]
  - CATARACT [None]
  - POSTERIOR CAPSULE RUPTURE [None]
